FAERS Safety Report 6165022-1 (Version None)
Quarter: 2009Q2

REPORT INFORMATION
  Report Type: 
  Country: None (occurrence: None)
  Receive Date: 20090423
  Receipt Date: 20090420
  Transmission Date: 20091009
  Serious: Yes (Hospitalization)
  Sender: FDA-Public Use
  Company Number: AU-B.I. PHARMACEUTICALS,INC./RIDGEFIELD-2009-AU-00138AU

PATIENT
  Sex: Male
  Weight: 50 kg

DRUGS (4)
  1. SPIRIVA [Suspect]
     Dosage: 18MCG
     Route: 055
  2. NEXIUM [Concomitant]
     Dosage: 20MG
     Route: 048
  3. SERETIDE [Concomitant]
     Dosage: 250/50 STRENGTH
  4. VENTOLIN [Concomitant]

REACTIONS (2)
  - CHRONIC OBSTRUCTIVE PULMONARY DISEASE [None]
  - PRODUCT QUALITY ISSUE [None]
